FAERS Safety Report 16065555 (Version 2)
Quarter: 2020Q3

REPORT INFORMATION
  Report Type: Spontaneous
  Country: CA (occurrence: CA)
  Receive Date: 20190313
  Receipt Date: 20200908
  Transmission Date: 20201102
  Serious: Yes (Hospitalization)
  Sender: FDA-Public Use
  Company Number: CA-JNJFOC-20190306502

PATIENT
  Age: 18 Year
  Sex: Female

DRUGS (3)
  1. CLONAZEPAM. [Suspect]
     Active Substance: CLONAZEPAM
     Indication: SUSPECTED SUICIDE
     Route: 065
     Dates: start: 2005
  2. TYLENOL [Suspect]
     Active Substance: ACETAMINOPHEN
     Indication: SUSPECTED SUICIDE
     Route: 065
     Dates: start: 2005
  3. EFFEXOR [Suspect]
     Active Substance: VENLAFAXINE HYDROCHLORIDE
     Indication: SUSPECTED SUICIDE
     Route: 065
     Dates: start: 2005

REACTIONS (3)
  - Depressed level of consciousness [Recovered/Resolved]
  - Hepatic enzyme increased [Recovered/Resolved]
  - Vomiting [Recovered/Resolved]

NARRATIVE: CASE EVENT DATE: 2005
